FAERS Safety Report 4302550-5 (Version None)
Quarter: 2004Q1

REPORT INFORMATION
  Report Type: 
  Country: None (occurrence: None)
  Receive Date: 20040217
  Receipt Date: 20030310
  Transmission Date: 20041129
  Serious: Yes (Hospitalization)
  Sender: FDA-Public Use
  Company Number: 2003150719US

PATIENT
  Sex: Female

DRUGS (1)
  1. CYTOTEC [Suspect]
     Indication: ABORTION INDUCED
     Dosage: 200 UG, (4), RECTAL
     Route: 054

REACTIONS (2)
  - HYPOTENSION [None]
  - VAGINAL HAEMORRHAGE [None]
